FAERS Safety Report 4360214-6 (Version None)
Quarter: 2004Q2

REPORT INFORMATION
  Report Type: 
  Country: None (occurrence: None)
  Receive Date: 20040513
  Receipt Date: 20040428
  Transmission Date: 20050107
  Serious: Yes (Hospitalization)
  Sender: FDA-Public Use
  Company Number: B01200400842

PATIENT
  Age: 51 Year
  Sex: Male

DRUGS (11)
  1. (OXALIPLATIN) - SOLUTION [Suspect]
     Indication: GASTRIC CANCER
     Dosage: 85 MG/M2 Q2W INTRAVENOUS NOS
     Route: 042
     Dates: start: 20031023, end: 20031023
  2. IRINOTECAN-SOLUTION [Suspect]
     Indication: GASTRIC CANCER
     Dosage: 125 MG/M2 Q2W INTRAVENOUS
     Route: 042
     Dates: start: 20031023, end: 20031023
  3. LOSEC (OMEPRAZOLE) [Concomitant]
  4. HYOSCINE HBR HYT [Concomitant]
  5. HALCION [Concomitant]
  6. DURAGESIC [Concomitant]
  7. MYCOSTATIN [Concomitant]
  8. MAGNOSOLV (MAGNESIUM CARBONATE, MAGNESIUM OXIDE) [Concomitant]
  9. CIPROFLOXACIN [Concomitant]
  10. ENTEROBENE (LOPERAMIDE HYDROCHLORIDE) [Concomitant]
  11. OPIUM TINCTURE [Concomitant]

REACTIONS (4)
  - CONDITION AGGRAVATED [None]
  - DEPRESSION [None]
  - DIARRHOEA [None]
  - GENERAL PHYSICAL HEALTH DETERIORATION [None]
